FAERS Safety Report 5929065-2 (Version None)
Quarter: 2008Q4

REPORT INFORMATION
  Report Type: 
  Country: None (occurrence: None)
  Receive Date: 20081024
  Receipt Date: 20081021
  Transmission Date: 20090506
  Serious: Yes (Death, Hospitalization)
  Sender: FDA-Public Use
  Company Number: US-JNJFOC-20081005205

PATIENT
  Sex: Female

DRUGS (1)
  1. IMODIUM [Suspect]
     Indication: DIARRHOEA
     Dosage: 3 DAYS
     Route: 048

REACTIONS (4)
  - DEATH [None]
  - DEHYDRATION [None]
  - DRUG INEFFECTIVE [None]
  - VOMITING [None]
